FAERS Safety Report 7141421-6 (Version None)
Quarter: 2010Q4

REPORT INFORMATION
  Report Type: 
  Country: None (occurrence: None)
  Receive Date: 20101207
  Receipt Date: 20101124
  Transmission Date: 20110411
  Serious: Yes (Hospitalization)
  Sender: FDA-Public Use
  Company Number: US-ELI_LILLY_AND_COMPANY-US201003005829

PATIENT
  Sex: Female

DRUGS (2)
  1. FORTEO [Suspect]
     Indication: OSTEOPOROSIS
     Dosage: 20 UG, DAILY (1/D)
     Dates: start: 20100225, end: 20100101
  2. FORTEO [Suspect]
     Dosage: 20 UG, DAILY (1/D)
     Dates: start: 20100101

REACTIONS (10)
  - ASTHENIA [None]
  - FEELING COLD [None]
  - HOSPITALISATION [None]
  - INSOMNIA [None]
  - MUSCLE SPASMS [None]
  - PERIPHERAL COLDNESS [None]
  - PRURITUS [None]
  - RASH [None]
  - SENSATION OF HEAVINESS [None]
  - SENSATION OF PRESSURE [None]
